FAERS Safety Report 9317807 (Version 2)
Quarter: 2013Q2

REPORT INFORMATION
  Report Type: Spontaneous
  Country: GB (occurrence: None)
  Receive Date: 20130524
  Receipt Date: 20130529
  Transmission Date: 20140414
  Serious: Yes (Hospitalization, Other)
  Sender: FDA-Public Use
  Company Number: AUR-APL-2013-04173

PATIENT
  Sex: Male
  Weight: 2.69 kg

DRUGS (5)
  1. OLANZAPINE (OLANZAPINE) [Suspect]
     Indication: BIPOLAR DISORDER
     Route: 064
  2. SODIUM VALPROATE (VALPROATE SODIUM) [Concomitant]
  3. PROMETHAZINE (PROMETHAZINE) [Concomitant]
  4. DIAZEPAM (DIAZEPAM) [Concomitant]
  5. LITHIUM (LITHIUM) [Concomitant]

REACTIONS (10)
  - Maternal drugs affecting foetus [None]
  - Hyperbilirubinaemia neonatal [None]
  - Metabolic acidosis [None]
  - Foetal growth restriction [None]
  - Grunting [None]
  - Dyspnoea [None]
  - Small for dates baby [None]
  - Caesarean section [None]
  - Hypoglycaemia neonatal [None]
  - Blood lactic acid increased [None]
